FAERS Safety Report 23924718 (Version 1)
Quarter: 2024Q2

REPORT INFORMATION
  Report Type: Other
  Country: IN (occurrence: VN)
  Receive Date: 20240531
  Receipt Date: 20240531
  Transmission Date: 20240716
  Serious: Yes (Life-Threatening, Hospitalization, Other)
  Sender: FDA-Public Use
  Company Number: VN-Breckenridge Pharmaceutical, Inc.-2157623

PATIENT
  Age: 76 Year
  Sex: Male

DRUGS (1)
  1. NOREPINEPHRINE [Suspect]
     Active Substance: NOREPINEPHRINE\NOREPINEPHRINE BITARTRATE
     Route: 042

REACTIONS (3)
  - Transvalvular pressure gradient increased [Recovered/Resolved]
  - Mitral valve incompetence [Recovered/Resolved]
  - Systolic anterior motion of mitral valve [Recovered/Resolved]
